FAERS Safety Report 5576348-4 (Version None)
Quarter: 2007Q4

REPORT INFORMATION
  Report Type: 
  Country: None (occurrence: None)
  Receive Date: 20071228
  Receipt Date: 20071220
  Transmission Date: 20080405
  Serious: Yes (Other)
  Sender: FDA-Public Use
  Company Number: GB-ALLERGAN-0714069US

PATIENT
  Sex: Female

DRUGS (1)
  1. BOTOX [Suspect]
     Indication: SKIN WRINKLING
     Dosage: UNK, SINGLE
     Route: 030

REACTIONS (4)
  - DYSARTHRIA [None]
  - EYE SWELLING [None]
  - HYPERSENSITIVITY [None]
  - MUSCULAR WEAKNESS [None]
